FAERS Safety Report 13276745 (Version 2)
Quarter: 2017Q1

REPORT INFORMATION
  Report Type: Spontaneous
  Country: US (occurrence: US)
  Receive Date: 20170228
  Receipt Date: 20170302
  Transmission Date: 20170428
  Serious: No
  Sender: FDA-Public Use
  Company Number: US-TEVA-737217ACC

PATIENT
  Age: 26 Year
  Sex: Female
  Weight: 83.99 kg

DRUGS (1)
  1. PLAN B ONE-STEP [Suspect]
     Active Substance: LEVONORGESTREL
     Indication: POST COITAL CONTRACEPTION
     Dates: start: 20170112, end: 20170112

REACTIONS (5)
  - Hypomenorrhoea [Recovered/Resolved]
  - Menstruation irregular [Recovered/Resolved]
  - Vaginal haemorrhage [Recovered/Resolved]
  - Dysmenorrhoea [Not Recovered/Not Resolved]
  - Hypomenorrhoea [Recovered/Resolved]

NARRATIVE: CASE EVENT DATE: 20170121
